FAERS Safety Report 10597571 (Version 1)
Quarter: 2014Q4

REPORT INFORMATION
  Report Type: Spontaneous
  Country: US (occurrence: None)
  Receive Date: 20141119
  Receipt Date: 20141119
  Transmission Date: 20150529
  Serious: Yes (Other)
  Sender: FDA-Public Use
  Company Number: DE_02365_2014

PATIENT

DRUGS (3)
  1. BACKGROUND OPIOID THERAPY [Concomitant]
  2. PRE-STUDY BREAKTHROUGH PAIN MEDICATION [Concomitant]
  3. FENTANYL. [Suspect]
     Active Substance: FENTANYL
     Indication: BREAKTHROUGH PAIN
     Dosage: PECTIN ONE 400 MCG SPRAY, TREATING UP TO 4 BREAKTHROUGH PAIN EPISODES/DAY NASAL)
     Route: 045

REACTIONS (4)
  - Accidental overdose [None]
  - Hallucination, tactile [None]
  - Neurotoxicity [None]
  - Hallucination, visual [None]
